FAERS Safety Report 9717770 (Version 2)
Quarter: 2013Q4

REPORT INFORMATION
  Report Type: Spontaneous
  Country: AU (occurrence: AU)
  Receive Date: 20131127
  Receipt Date: 20131127
  Transmission Date: 20140711
  Serious: Yes (Disabling, Other)
  Sender: FDA-Public Use
  Company Number: AU-PFIZER INC-2013330090

PATIENT
  Age: 53 Year
  Sex: Female
  Weight: 83 kg

DRUGS (2)
  1. LYRICA [Suspect]
     Indication: PAIN
     Dosage: 450 MG, 1X/DAY
     Route: 048
     Dates: start: 20080630
  2. ATORVASTATIN CALCIUM [Suspect]
     Indication: METABOLIC DISORDER
     Dosage: 10 MG, 1X/DAY
     Route: 048
     Dates: start: 20130103, end: 20130115

REACTIONS (10)
  - Myalgia [Recovering/Resolving]
  - Hypersensitivity [Unknown]
  - Hyperhidrosis [Recovering/Resolving]
  - Dysgeusia [Recovering/Resolving]
  - Eye pruritus [Recovering/Resolving]
  - Face oedema [Recovering/Resolving]
  - Nausea [Recovering/Resolving]
  - Malaise [Unknown]
  - Pruritus [Unknown]
  - Inflammation [Unknown]
